FAERS Safety Report 23311895 (Version 1)
Quarter: 2023Q4

REPORT INFORMATION
  Report Type: Spontaneous
  Country: US (occurrence: US)
  Receive Date: 20231219
  Receipt Date: 20231219
  Transmission Date: 20240109
  Serious: No
  Sender: FDA-Public Use
  Company Number: US-PADAGIS-2023PAD01714

PATIENT

DRUGS (3)
  1. TRIAMCINOLONE ACETONIDE [Suspect]
     Active Substance: TRIAMCINOLONE ACETONIDE
     Indication: Skin mass
     Dosage: BID (AS NEEDED)
     Route: 065
  2. TRIAMCINOLONE ACETONIDE [Suspect]
     Active Substance: TRIAMCINOLONE ACETONIDE
     Dosage: BID (TRIAMCINOLONE ACETONIDE 0.1% EXTERNAL OINTMENT)
     Route: 065
  3. TERBINAFINE HYDROCHLORIDE [Suspect]
     Active Substance: TERBINAFINE HYDROCHLORIDE
     Indication: Skin mass
     Dosage: 250 MG, QD (ONE PILL ONCE A DAY)
     Route: 048

REACTIONS (1)
  - Therapy partial responder [Unknown]
